APPROVED DRUG PRODUCT: AKINETON
Active Ingredient: BIPERIDEN LACTATE
Strength: 5MG/ML
Dosage Form/Route: INJECTABLE;INJECTION
Application: N012418 | Product #002
Applicant: ABBVIE INC
Approved: Approved Prior to Jan 1, 1982 | RLD: No | RS: No | Type: DISCN